FAERS Safety Report 19255627 (Version 7)
Quarter: 2025Q3

REPORT INFORMATION
  Report Type: Spontaneous
  Country: EU (occurrence: EU)
  Receive Date: 20210514
  Receipt Date: 20250918
  Transmission Date: 20251021
  Serious: Yes (Hospitalization, Other)
  Sender: AUROBINDO
  Company Number: EU-AUROBINDO-AUR-APL-2021-018602

PATIENT
  Age: 76 Year
  Sex: Female

DRUGS (77)
  1. SERTRALINE [Suspect]
     Active Substance: SERTRALINE HYDROCHLORIDE
     Indication: Mixed anxiety and depressive disorder
     Route: 065
  2. VENLAFAXINE [Suspect]
     Active Substance: VENLAFAXINE HYDROCHLORIDE
     Indication: Mixed anxiety and depressive disorder
     Route: 065
  3. AMITRIPTYLINE [Suspect]
     Active Substance: AMITRIPTYLINE
     Indication: Mixed anxiety and depressive disorder
     Route: 065
  4. CHLORPROTHIXENE HYDROCHLORIDE [Suspect]
     Active Substance: CHLORPROTHIXENE HYDROCHLORIDE
     Indication: Mixed anxiety and depressive disorder
     Dosage: 15 MILLIGRAM, TWO TIMES A DAY
     Route: 065
  5. CHLORPROTHIXENE HYDROCHLORIDE [Suspect]
     Active Substance: CHLORPROTHIXENE HYDROCHLORIDE
     Dosage: 15 MILLIGRAM, ONCE A DAY
     Route: 065
  6. FENTANYL CITRATE [Suspect]
     Active Substance: FENTANYL CITRATE
     Indication: Pain
     Route: 002
  7. FENTANYL CITRATE [Suspect]
     Active Substance: FENTANYL CITRATE
     Indication: Analgesic intervention supportive therapy
     Dosage: 400 MICROGRAM, TWO TIMES A DAY
  8. FENTANYL CITRATE [Suspect]
     Active Substance: FENTANYL CITRATE
  9. FENTANYL CITRATE [Suspect]
     Active Substance: FENTANYL CITRATE
  10. FENTANYL CITRATE [Suspect]
     Active Substance: FENTANYL CITRATE
  11. FENTANYL CITRATE [Suspect]
     Active Substance: FENTANYL CITRATE
     Route: 048
  12. FENTANYL [Suspect]
     Active Substance: FENTANYL
     Indication: Pain
     Route: 062
  13. FENTANYL [Suspect]
     Active Substance: FENTANYL
     Indication: Analgesic intervention supportive therapy
     Route: 062
  14. FENTANYL [Suspect]
     Active Substance: FENTANYL
     Indication: Myalgia
     Route: 062
  15. FENTANYL [Suspect]
     Active Substance: FENTANYL
     Route: 062
  16. FENTANYL [Suspect]
     Active Substance: FENTANYL
     Route: 062
  17. FENTANYL [Suspect]
     Active Substance: FENTANYL
     Indication: Pain
     Route: 045
  18. FENTANYL [Suspect]
     Active Substance: FENTANYL
     Indication: Analgesic intervention supportive therapy
  19. FENTANYL [Suspect]
     Active Substance: FENTANYL
     Indication: Pain
     Route: 065
  20. HYDROXYZINE [Suspect]
     Active Substance: HYDROXYZINE HYDROCHLORIDE
     Indication: Product used for unknown indication
     Dosage: 10 MILLIGRAM, ONCE A DAY PER NIGHT
     Route: 065
  21. LORAZEPAM [Suspect]
     Active Substance: LORAZEPAM
     Indication: Mixed anxiety and depressive disorder
     Route: 065
  22. OXYCODONE [Suspect]
     Active Substance: OXYCODONE
     Indication: Pain
     Route: 065
  23. OXYCODONE [Suspect]
     Active Substance: OXYCODONE
     Indication: Analgesic intervention supportive therapy
  24. OXYCODONE [Suspect]
     Active Substance: OXYCODONE
     Indication: Back pain
  25. MORPHINE [Suspect]
     Active Substance: MORPHINE
     Indication: Pain
     Route: 065
  26. MORPHINE [Suspect]
     Active Substance: MORPHINE
     Indication: Analgesic intervention supportive therapy
  27. MORPHINE [Suspect]
     Active Substance: MORPHINE
     Indication: Myalgia
  28. PREGABALIN [Suspect]
     Active Substance: PREGABALIN
     Indication: Pain
     Dosage: 75 MICROGRAM, TWO TIMES A DAY (75 MG IN THE MORNING AND 75 MG IN THE EVENING)
     Route: 048
  29. PREGABALIN [Suspect]
     Active Substance: PREGABALIN
     Dosage: 300 MICROGRAM, ONCE A DAY (75 MG IN THE MORNING AND 75 MG IN THE EVENING)
     Route: 048
  30. QUETIAPINE [Suspect]
     Active Substance: QUETIAPINE
     Indication: Product used for unknown indication
     Dosage: 25 MILLIGRAM, ONCE A DAY PER NIGHT
     Route: 065
  31. QUETIAPINE [Suspect]
     Active Substance: QUETIAPINE
     Dosage: 50 MILLIGRAM, ONCE A DAY, 1 X 2 TABLETS FOR NIGHT
     Route: 065
  32. TIANEPTINE SODIUM [Suspect]
     Active Substance: TIANEPTINE SODIUM
     Indication: Mixed anxiety and depressive disorder
     Dosage: 12.5 MILLIGRAM, 3 TIMES A DAY
     Route: 065
  33. TAPENTADOL [Suspect]
     Active Substance: TAPENTADOL
     Indication: Pain
     Route: 065
  34. TAPENTADOL [Suspect]
     Active Substance: TAPENTADOL
     Indication: Analgesic intervention supportive therapy
  35. TAPENTADOL [Suspect]
     Active Substance: TAPENTADOL
     Indication: Myalgia
  36. BISOPROLOL [Concomitant]
     Active Substance: BISOPROLOL
     Indication: Product used for unknown indication
     Dosage: 0.5 DOSAGE FORM, ONCE A DAY (2.5 MG DAILY)
     Route: 048
  37. BISOPROLOL [Concomitant]
     Active Substance: BISOPROLOL
     Dosage: 5 MILLIGRAM, ONCE A DAY
     Route: 065
  38. BISOPROLOL [Concomitant]
     Active Substance: BISOPROLOL
     Route: 048
  39. CHONDROITIN SULFATE SODIUM NOS [Suspect]
     Active Substance: CHONDROITIN SULFATE SODIUM NOS
     Indication: Product used for unknown indication
     Dosage: 1000 MILLIGRAM, ONCE A DAY
     Route: 065
  40. BUPRENORPHINE [Concomitant]
     Active Substance: BUPRENORPHINE
     Indication: Product used for unknown indication
     Route: 062
  41. CAPTOPRIL [Concomitant]
     Active Substance: CAPTOPRIL
     Indication: Product used for unknown indication
     Route: 048
  42. INDAPAMIDE [Concomitant]
     Active Substance: INDAPAMIDE
     Indication: Product used for unknown indication
     Dosage: 1 DOSAGE FORM, ONCE A DAY
     Route: 048
  43. DULOXETINE [Concomitant]
     Active Substance: DULOXETINE
     Indication: Product used for unknown indication
     Route: 065
  44. DULOXETINE [Concomitant]
     Active Substance: DULOXETINE
     Route: 065
  45. Duspatalin Retard [Concomitant]
     Indication: Product used for unknown indication
     Dosage: 1 DOSAGE FORM, TWO TIMES A DAY
     Route: 048
  46. BROMHEXINE HYDROCHLORIDE [Concomitant]
     Active Substance: BROMHEXINE HYDROCHLORIDE
     Indication: Product used for unknown indication
     Dosage: 1 DOSAGE FORM, ONCE A DAY 8 MG ONCE A DAY
     Route: 048
  47. INHIBACE [Concomitant]
     Active Substance: CILAZAPRIL ANHYDROUS
     Indication: Product used for unknown indication
     Dosage: 1 DOSAGE FORM, TWO TIMES A DAY (5 MILLIGRAM 2 X 1)
     Route: 048
  48. INHIBACE [Concomitant]
     Active Substance: CILAZAPRIL ANHYDROUS
     Dosage: 10 MILLIGRAM, ONCE A DAY (5 MG, BID (2/DAY) )
     Route: 048
  49. POTASSIUM CHLORIDE [Concomitant]
     Active Substance: POTASSIUM CHLORIDE
     Indication: Product used for unknown indication
     Dosage: 1 DOSAGE FORM, ONCE A DAY
     Route: 048
  50. LIDOCAINE [Concomitant]
     Active Substance: LIDOCAINE
     Indication: Pain
     Route: 042
  51. Lioton [Concomitant]
     Indication: Product used for unknown indication
     Route: 061
  52. UNSPECIFIED INGREDIENT [Concomitant]
     Active Substance: UNSPECIFIED INGREDIENT
     Indication: Product used for unknown indication
     Dosage: 1 DOSAGE FORM, ONCE A DAY (50 MG ONCE A DAY)
     Route: 060
  53. PIRACETAM [Concomitant]
     Active Substance: PIRACETAM
     Indication: Product used for unknown indication
     Dosage: 1 DOSAGE FORM, TWO TIMES A DAY
     Route: 048
  54. PIRACETAM [Concomitant]
     Active Substance: PIRACETAM
     Dosage: 2400  MILLIGRAM, ONCE A DAY
     Route: 048
  55. ALLOPURINOL [Concomitant]
     Active Substance: ALLOPURINOL
     Indication: Product used for unknown indication
     Dosage: 1 DOSAGE FORM, ONCE A DAY (300 MG PER DAY)
     Route: 048
  56. ALLOPURINOL [Concomitant]
     Active Substance: ALLOPURINOL
     Dosage: 150 MILLIGRAM, ONCE A DAY
     Route: 065
  57. ALLOPURINOL [Concomitant]
     Active Substance: ALLOPURINOL
     Route: 048
  58. ALLOPURINOL [Concomitant]
     Active Substance: ALLOPURINOL
     Route: 065
  59. Mizodin [Concomitant]
     Indication: Product used for unknown indication
     Dosage: 250 MILLIGRAM, TWO TIMES A DAY
     Route: 048
  60. Mizodin [Concomitant]
     Route: 048
  61. Nitrendipina [Concomitant]
     Indication: Product used for unknown indication
     Dosage: 0.5 DOSAGE FORM, ONCE A DAY
     Route: 048
  62. Nitrendipina [Concomitant]
     Dosage: 10 MILLIGRAM, ONCE A DAY
     Route: 065
  63. Nitrendipina [Concomitant]
     Route: 048
  64. DROTAVERINE HYDROCHLORIDE [Concomitant]
     Active Substance: DROTAVERINE HYDROCHLORIDE
     Indication: Product used for unknown indication
     Dosage: 1 DOSAGE FORM, TWO TIMES A DAY
     Route: 048
  65. PENTOXIFYLLINE [Concomitant]
     Active Substance: PENTOXIFYLLINE
     Indication: Pain
     Route: 065
  66. POTASSIUM CHLORIDE [Concomitant]
     Active Substance: POTASSIUM CHLORIDE
     Indication: Product used for unknown indication
     Route: 048
  67. Rennie [Concomitant]
     Indication: Product used for unknown indication
     Dosage: 1 DOSAGE FORM, TWO TIMES A DAY
     Route: 048
  68. SIMETHICONE (DIMETHICONE) [Concomitant]
     Active Substance: DIMETHICONE
     Indication: Product used for unknown indication
     Dosage: 2 DOSAGE FORM, TWO TIMES A DAY (2X2)
     Route: 048
  69. Structum [Concomitant]
     Indication: Product used for unknown indication
     Dosage: 1 DOSAGE FORM, TWO TIMES A DAY (500 MG TWO TIMES A DAY)
     Route: 048
  70. TOLPERISONE [Concomitant]
     Active Substance: TOLPERISONE
     Indication: Myalgia
     Route: 065
  71. TORECAN [Concomitant]
     Active Substance: THIETHYLPERAZINE MALATE
     Indication: Product used for unknown indication
     Dosage: 1 DOSAGE FORM, ONCE A DAY
     Route: 048
  72. TORECAN [Concomitant]
     Active Substance: THIETHYLPERAZINE MALATE
     Dosage: 6.5 MILLIGRAM, ONCE A DAY
     Route: 065
  73. ETOFENAMATE [Concomitant]
     Active Substance: ETOFENAMATE
     Indication: Product used for unknown indication
     Route: 061
  74. Ulgix laxi [Concomitant]
     Indication: Product used for unknown indication
     Dosage: 1 DOSAGE FORM, 3 TIMES A DAY
     Route: 048
  75. Urosept [Concomitant]
     Indication: Product used for unknown indication
     Dosage: 1 DOSAGE FORM, TWO TIMES A DAY
     Route: 048
  76. VITAMIN D3 [Concomitant]
     Active Substance: CHOLECALCIFEROL
     Indication: Product used for unknown indication
     Dosage: 1 DOSAGE FORM, ONCE A DAY
     Route: 048
  77. VITAMIN D3 [Concomitant]
     Active Substance: CHOLECALCIFEROL
     Dosage: 4000 INTERNATIONAL UNIT, ONCE A DAY
     Route: 048

REACTIONS (22)
  - Pain [Unknown]
  - Asthenia [Unknown]
  - Obstruction [Unknown]
  - Hypotension [Unknown]
  - Constipation [Recovering/Resolving]
  - Mental disorder [Unknown]
  - Drug use disorder [Unknown]
  - Drug intolerance [Recovered/Resolved]
  - Intentional product use issue [Unknown]
  - Product use in unapproved indication [Unknown]
  - Contraindicated product administered [Unknown]
  - Drug withdrawal syndrome [Unknown]
  - Drug dependence [Not Recovered/Not Resolved]
  - Affective disorder [Recovered/Resolved]
  - Drug ineffective [Unknown]
  - Drug tolerance decreased [Unknown]
  - Intentional product misuse [Unknown]
  - Withdrawal syndrome [Unknown]
  - Drug interaction [Unknown]
  - Chills [Recovering/Resolving]
  - Myalgia [Recovering/Resolving]
  - Anxiety [Recovering/Resolving]

NARRATIVE: CASE EVENT DATE: 20170101
